FAERS Safety Report 16313922 (Version 2)
Quarter: 2019Q3

REPORT INFORMATION
  Report Type: Spontaneous
  Country: US (occurrence: US)
  Receive Date: 20190515
  Receipt Date: 20190809
  Transmission Date: 20191004
  Serious: No
  Sender: FDA-Public Use
  Company Number: US-PFIZER INC-2019203475

PATIENT
  Age: 58 Year
  Sex: Female
  Weight: 127.1 kg

DRUGS (2)
  1. IBUPROFEN. [Suspect]
     Active Substance: IBUPROFEN
     Indication: MIGRAINE
  2. IBUPROFEN. [Suspect]
     Active Substance: IBUPROFEN
     Indication: PAIN
     Dosage: UNK

REACTIONS (1)
  - Drug ineffective [Unknown]
